FAERS Safety Report 19461629 (Version 1)
Quarter: 2021Q2

REPORT INFORMATION
  Report Type: Spontaneous
  Country: US (occurrence: US)
  Receive Date: 20210625
  Receipt Date: 20210625
  Transmission Date: 20210717
  Serious: No
  Sender: FDA-Public Use
  Company Number: US-GW PHARMA-202106USGW03060

PATIENT

DRUGS (2)
  1. EPIDIOLEX [Suspect]
     Active Substance: CANNABIDIOL
     Indication: EPILEPSY
  2. EPIDIOLEX [Suspect]
     Active Substance: CANNABIDIOL
     Indication: EPILEPSY
     Dosage: 100 MILLIGRAM, UNK
     Route: 048
     Dates: start: 20210226

REACTIONS (4)
  - Refusal of treatment by patient [Unknown]
  - Inappropriate schedule of product administration [Unknown]
  - Abnormal behaviour [Unknown]
  - Chills [Unknown]

NARRATIVE: CASE EVENT DATE: 2021
